FAERS Safety Report 19366932 (Version 1)
Quarter: 2021Q2

REPORT INFORMATION
  Report Type: Spontaneous
  Country: DK (occurrence: DK)
  Receive Date: 20210603
  Receipt Date: 20210603
  Transmission Date: 20210717
  Serious: Yes (Other)
  Sender: FDA-Public Use
  Company Number: DK-ASTRAZENECA-2021A359970

PATIENT
  Age: 21618 Day
  Sex: Male

DRUGS (4)
  1. OSIMERTINIB. [Suspect]
     Active Substance: OSIMERTINIB
     Indication: NON-SMALL CELL LUNG CANCER
     Dosage: 80.0MG UNKNOWN
     Route: 048
     Dates: start: 20200707, end: 20210420
  2. OSIMERTINIB. [Suspect]
     Active Substance: OSIMERTINIB
     Indication: NON-SMALL CELL LUNG CANCER
     Dosage: 40.0MG UNKNOWN
     Route: 048
  3. TIOTROPIUM/OLODATEROL [Concomitant]
     Indication: ASTHMA
     Route: 055
     Dates: start: 2016
  4. ZOLPICLON [Concomitant]
     Indication: INSOMNIA
     Dosage: 1 QD WHEN NEEDED
     Route: 048
     Dates: start: 2020

REACTIONS (3)
  - Erythema multiforme [Unknown]
  - Burning sensation [Recovering/Resolving]
  - Lupus-like syndrome [Recovering/Resolving]

NARRATIVE: CASE EVENT DATE: 20210210
